FAERS Safety Report 4696622-3 (Version None)
Quarter: 2005Q2

REPORT INFORMATION
  Report Type: 
  Country: None (occurrence: None)
  Receive Date: 20050620
  Receipt Date: 20050301
  Transmission Date: 20051028
  Serious: Yes (Hospitalization, Other)
  Sender: FDA-Public Use
  Company Number: 200511113US

PATIENT
  Age: 69 Year
  Sex: Female

DRUGS (10)
  1. LANTUS [Suspect]
     Indication: DEPRESSION
     Dosage: 400 U
     Dates: start: 20050210, end: 20050210
  2. HUMALOG [Suspect]
     Indication: DEPRESSION
     Dosage: 400 U
     Dates: start: 20050210, end: 20050210
  3. EFFEXOR [Concomitant]
  4. TRAZODONE [Concomitant]
  5. REMERON [Concomitant]
  6. TRICOR [Concomitant]
  7. AMBIEN [Concomitant]
  8. TYLENOL [Concomitant]
  9. LOPERAMIDE HYDROCHLORIDE (IMODIUM ^JANSSEN^) [Concomitant]
  10. LORAZEPAM [Concomitant]

REACTIONS (1)
  - OVERDOSE [None]
